FAERS Safety Report 8942360 (Version 2)
Quarter: 2013Q1

REPORT INFORMATION
  Report Type: Spontaneous
  Country: US (occurrence: None)
  Receive Date: 20121121
  Receipt Date: 20130123
  Transmission Date: 20140127
  Serious: Yes (Other)
  Sender: FDA-Public Use
  Company Number: B0845886A

PATIENT
  Age: 29 Year
  Sex: Female

DRUGS (3)
  1. BUPROPION HYDROCHLORIDE [Suspect]
  2. GABAPENTIN [Concomitant]
  3. DEXAMPHETAMINE SULPHATE [Concomitant]

REACTIONS (22)
  - Toxicity to various agents [None]
  - Overdose [None]
  - Brain death [None]
  - Pupil fixed [None]
  - Drug level above therapeutic [None]
  - Electroencephalogram abnormal [None]
  - Mental status changes [None]
  - Grand mal convulsion [None]
  - Dizziness [None]
  - Fall [None]
  - Sinus tachycardia [None]
  - Blood pressure decreased [None]
  - Respiratory rate increased [None]
  - Unresponsive to stimuli [None]
  - Metabolic acidosis [None]
  - Electrocardiogram QT prolonged [None]
  - Status epilepticus [None]
  - Hypotension [None]
  - Sepsis [None]
  - Ventricular hypokinesia [None]
  - Ejection fraction decreased [None]
  - Areflexia [None]
